FAERS Safety Report 13155862 (Version 1)
Quarter: 2017Q1

REPORT INFORMATION
  Report Type: Spontaneous
  Country: US (occurrence: US)
  Receive Date: 20170126
  Receipt Date: 20170126
  Transmission Date: 20170428
  Serious: No
  Sender: FDA-Public Use
  Company Number: US-ROCHE-753070

PATIENT
  Sex: Female
  Weight: 40 kg

DRUGS (5)
  1. DIAZEPAM. [Suspect]
     Active Substance: DIAZEPAM
     Indication: MENIERE^S DISEASE
     Route: 065
  2. VALIUM [Suspect]
     Active Substance: DIAZEPAM
     Indication: MENIERE^S DISEASE
     Route: 048
  3. METHOTREXATE. [Concomitant]
     Active Substance: METHOTREXATE
     Route: 065
  4. FEMARA [Concomitant]
     Active Substance: LETROZOLE
     Route: 065
  5. HUMIRA [Concomitant]
     Active Substance: ADALIMUMAB
     Route: 065

REACTIONS (2)
  - Therapeutic response changed [Unknown]
  - Dizziness [Unknown]
